FAERS Safety Report 8845911 (Version 2)
Quarter: 2013Q4

REPORT INFORMATION
  Report Type: Spontaneous
  Country: US (occurrence: US)
  Receive Date: 20121017
  Receipt Date: 20131029
  Transmission Date: 20140711
  Serious: Yes (Hospitalization)
  Sender: FDA-Public Use
  Company Number: US-PERRIGO-12US008777

PATIENT
  Age: 75 Year
  Sex: Female
  Weight: 37.37 kg

DRUGS (10)
  1. ACETAMINOPHEN 500MG 917 [Suspect]
     Indication: PAIN
     Dosage: 1000 MG, TID
     Route: 048
     Dates: start: 20120927, end: 20121007
  2. BACK AID TABLETS [Suspect]
     Indication: PAIN
     Dosage: 2 TABLETS, EVERY 6-8 HOURS
     Route: 048
     Dates: start: 201202, end: 20121007
  3. NORCO [Suspect]
     Indication: PAIN
     Dosage: 5 MG/325 MG, Q 6H PRN
     Route: 048
  4. BAYER ADVANCED ASPIRIN 500MG [Suspect]
     Indication: PAIN
     Dosage: UNKNOWN, UNKNOWN
     Route: 048
     Dates: end: 20121007
  5. CALTRATE WITH VITAMIN D [Concomitant]
     Indication: SUPPLEMENTATION THERAPY
     Dosage: UNKNOWN, UNKNOWN
     Route: 048
     Dates: end: 20121007
  6. OSTEO BI-FLEX [Concomitant]
     Indication: ARTHROPATHY
     Dosage: UNKNOWN, UNKNOWN
     Route: 065
     Dates: end: 20121007
  7. CENTURY MATURE MULTIVITAMIN [Concomitant]
     Indication: SUPPLEMENTATION THERAPY
     Dosage: UNKNOWN, UNKNOWN
     Route: 048
     Dates: end: 20121007
  8. DIPHENHYDRAMINE HCL [Concomitant]
     Indication: HYPERSENSITIVITY
     Dosage: UNKNOWN, UNKNOWN
     Route: 048
     Dates: end: 20121007
  9. TRAMADOL [Concomitant]
     Indication: PAIN
     Dosage: 25 MG, Q 6H PRN
     Route: 048
  10. LIPITOR [Concomitant]
     Indication: HYPERLIPIDAEMIA
     Dosage: 40 MG, QHS
     Route: 048

REACTIONS (23)
  - Toxicity to various agents [Unknown]
  - Hallucination [Unknown]
  - Pulmonary oedema [Unknown]
  - Hepatic failure [Recovered/Resolved]
  - Renal failure [Recovered/Resolved]
  - Dyspnoea [Recovered/Resolved]
  - Hypopnoea [Recovering/Resolving]
  - Dysarthria [Recovered/Resolved]
  - Overdose [Recovered/Resolved]
  - Drug administration error [Unknown]
  - Confusional state [Recovered/Resolved]
  - Hepatitis [Recovered/Resolved]
  - Hepatic encephalopathy [Recovered/Resolved]
  - Metabolic acidosis [Recovered/Resolved]
  - Hyperkalaemia [Recovered/Resolved]
  - Coagulopathy [Recovered/Resolved]
  - Dehydration [Recovered/Resolved]
  - Urinary tract infection [Recovering/Resolving]
  - Disorientation [Recovered/Resolved]
  - Loss of consciousness [Recovered/Resolved]
  - Dizziness [Recovered/Resolved]
  - Somnolence [Recovered/Resolved]
  - Fall [Recovered/Resolved]
